FAERS Safety Report 10991175 (Version 3)
Quarter: 2015Q2

REPORT INFORMATION
  Report Type: Report from Study
  Country: US (occurrence: US)
  Receive Date: 20150406
  Receipt Date: 20150511
  Transmission Date: 20150821
  Serious: Yes (Hospitalization, Other)
  Sender: FDA-Public Use
  Company Number: US-GILEAD-2015-0144876

PATIENT
  Age: 63 Year
  Sex: Female

DRUGS (2)
  1. IDELALISIB [Suspect]
     Active Substance: IDELALISIB
     Indication: LYMPHOMA
     Dosage: 150 MG, BID
     Route: 048
     Dates: start: 20140813, end: 20150313
  2. IDELALISIB [Suspect]
     Active Substance: IDELALISIB
     Indication: LEUKAEMIA
     Dosage: 100 MG, BID
     Route: 048
     Dates: start: 20150504

REACTIONS (6)
  - Dehydration [Unknown]
  - Vomiting [Recovered/Resolved]
  - Colitis [Unknown]
  - Diarrhoea [Recovered/Resolved]
  - Toxicity to various agents [Recovered/Resolved]
  - Weight decreased [Unknown]

NARRATIVE: CASE EVENT DATE: 201503
